FAERS Safety Report 8228500-7 (Version None)
Quarter: 2012Q1

REPORT INFORMATION
  Report Type: 
  Country: None (occurrence: None)
  Receive Date: 20120322
  Receipt Date: 20110615
  Transmission Date: 20120608
  Serious: Yes (Other)
  Sender: FDA-Public Use
  Company Number: US-BRISTOL-MYERS SQUIBB COMPANY-15771744

PATIENT
  Age: 56 Year
  Sex: Male

DRUGS (5)
  1. FENOFIBRATE [Concomitant]
  2. ERBITUX [Suspect]
     Indication: TONSIL CANCER
     Dosage: 32ML(INFUS 120ML/HR) LOT NO 10C00197C EXP DATE:JUN2013 1ST DOSE:800MG FOLL DOSE:500MG WK*7 DOSE
     Route: 042
     Dates: start: 20110512
  3. VYTORIN [Concomitant]
  4. ATENOLOL [Concomitant]
  5. LOVAZA [Concomitant]

REACTIONS (8)
  - THROAT TIGHTNESS [None]
  - BLOOD PRESSURE DECREASED [None]
  - NAUSEA [None]
  - OXYGEN SATURATION DECREASED [None]
  - CHEST PAIN [None]
  - FEELING ABNORMAL [None]
  - ERYTHEMA [None]
  - PRURITUS [None]
